FAERS Safety Report 9245951 (Version 2)
Quarter: 2013Q3

REPORT INFORMATION
  Report Type: Spontaneous
  Country: JP (occurrence: JP)
  Receive Date: 20130422
  Receipt Date: 20130911
  Transmission Date: 20140515
  Serious: Yes (Other)
  Sender: FDA-Public Use
  Company Number: JP-ROCHE-1216346

PATIENT
  Age: 4 Year
  Sex: Male
  Weight: 15 kg

DRUGS (3)
  1. TAMIFLU [Suspect]
     Indication: INFLUENZA
     Route: 048
     Dates: start: 20130401, end: 20130403
  2. BROCIN [Concomitant]
     Indication: INFLUENZA
     Route: 048
     Dates: start: 20130401
  3. MUCODYNE [Concomitant]
     Indication: INFLUENZA
     Route: 048
     Dates: start: 20130401

REACTIONS (1)
  - Abnormal behaviour [Recovered/Resolved]
